FAERS Safety Report 12373365 (Version 1)
Quarter: 2016Q2

REPORT INFORMATION
  Report Type: Spontaneous
  Country: US (occurrence: US)
  Receive Date: 20160516
  Receipt Date: 20160516
  Transmission Date: 20160815
  Serious: Yes (Other)
  Sender: FDA-Public Use
  Company Number: US-LUNDBECK-DKLU2013666

PATIENT
  Sex: Male

DRUGS (1)
  1. ONFI [Suspect]
     Active Substance: CLOBAZAM
     Indication: SEIZURE
     Route: 048
     Dates: start: 201406

REACTIONS (6)
  - Drug withdrawal convulsions [Unknown]
  - Ear injury [Unknown]
  - Fall [Recovered/Resolved]
  - Change in seizure presentation [Unknown]
  - Drug dose omission [Unknown]
  - Rib fracture [Unknown]
